FAERS Safety Report 7993081-X (Version None)
Quarter: 2011Q4

REPORT INFORMATION
  Report Type: 
  Country: None (occurrence: None)
  Receive Date: 20111219
  Receipt Date: 20110624
  Transmission Date: 20120403
  Serious: No
  Sender: FDA-Public Use
  Company Number: US-ASTRAZENECA-2011SE38586

PATIENT
  Age: 64 Year
  Sex: Female

DRUGS (3)
  1. LASIX [Concomitant]
  2. CRESTOR [Suspect]
     Indication: BLOOD CHOLESTEROL INCREASED
     Route: 048
  3. HUMULIN 70/30 [Concomitant]

REACTIONS (2)
  - MYALGIA [None]
  - WRONG TECHNIQUE IN DRUG USAGE PROCESS [None]
